FAERS Safety Report 9999082 (Version 2)
Quarter: 2014Q1

REPORT INFORMATION
  Report Type: Spontaneous
  Country: JP (occurrence: JP)
  Receive Date: 20140312
  Receipt Date: 20140312
  Transmission Date: 20141002
  Serious: Yes (Other)
  Sender: FDA-Public Use
  Company Number: JP-ROCHE-1286821

PATIENT
  Age: 75 Year
  Sex: Female
  Weight: 63 kg

DRUGS (9)
  1. MIRCERA [Suspect]
     Indication: NEPHROGENIC ANAEMIA
     Route: 042
     Dates: start: 20130427, end: 20130511
  2. MIRCERA [Suspect]
     Indication: NEPHROGENIC ANAEMIA
     Route: 042
     Dates: start: 20130525, end: 20130810
  3. MIRCERA [Suspect]
     Indication: NEPHROGENIC ANAEMIA
     Route: 042
     Dates: start: 20130824
  4. EPOGIN S [Suspect]
     Indication: NEPHROGENIC ANAEMIA
     Dosage: DOSES : 3
     Route: 042
     Dates: start: 20111013, end: 20130425
  5. ROCALTROL [Concomitant]
     Route: 048
  6. ARTIST [Concomitant]
     Route: 048
  7. ALLOZYM [Concomitant]
     Route: 048
     Dates: end: 20130627
  8. REMITCH [Concomitant]
     Route: 048
  9. ARGAMATE [Concomitant]
     Route: 048
     Dates: start: 20130110

REACTIONS (2)
  - Anaemia [Recovering/Resolving]
  - Bone marrow failure [Unknown]
